FAERS Safety Report 23535455 (Version 1)
Quarter: 2024Q1

REPORT INFORMATION
  Report Type: Spontaneous
  Country: RU (occurrence: None)
  Receive Date: 20240218
  Receipt Date: 20240218
  Transmission Date: 20240409
  Serious: Yes (Other)
  Sender: FDA-Public Use
  Company Number: 2024A036524

PATIENT
  Sex: Female

DRUGS (2)
  1. OSIMERTINIB [Suspect]
     Active Substance: OSIMERTINIB
     Indication: Lung carcinoma cell type unspecified stage IV
     Route: 048
     Dates: start: 202309
  2. OSIMERTINIB [Suspect]
     Active Substance: OSIMERTINIB
     Indication: EGFR gene mutation
     Route: 048
     Dates: start: 202309

REACTIONS (3)
  - Swelling face [Not Recovered/Not Resolved]
  - Pain in jaw [Not Recovered/Not Resolved]
  - Trismus [Not Recovered/Not Resolved]

NARRATIVE: CASE EVENT DATE: 20231001
